FAERS Safety Report 16772082 (Version 5)
Quarter: 2019Q4

REPORT INFORMATION
  Report Type: Spontaneous
  Country: US (occurrence: US)
  Receive Date: 20190904
  Receipt Date: 20191107
  Transmission Date: 20200122
  Serious: Yes (Hospitalization, Other)
  Sender: FDA-Public Use
  Company Number: US-PFIZER INC-2019062434

PATIENT
  Age: 78 Year
  Sex: Male
  Weight: 93 kg

DRUGS (3)
  1. LYRICA [Suspect]
     Active Substance: PREGABALIN
     Indication: NEUROPATHY PERIPHERAL
     Dosage: 75 MG, 1X/DAY
     Dates: start: 2008
  2. LYRICA [Suspect]
     Active Substance: PREGABALIN
     Dosage: UNK
  3. LYRICA [Suspect]
     Active Substance: PREGABALIN
     Indication: POLYNEUROPATHY
     Dosage: 75 MG, 1X/DAY (NIGHTLY)
     Route: 048
     Dates: start: 20121031, end: 20190917

REACTIONS (6)
  - Restlessness [Recovered/Resolved]
  - Agitation [Recovered/Resolved]
  - Pain [Recovered/Resolved]
  - Cerebrovascular accident [Not Recovered/Not Resolved]
  - Irritability [Recovered/Resolved]
  - Withdrawal syndrome [Recovered/Resolved]

NARRATIVE: CASE EVENT DATE: 20170704
